FAERS Safety Report 8229010-3 (Version None)
Quarter: 2012Q1

REPORT INFORMATION
  Report Type: 
  Country: None (occurrence: None)
  Receive Date: 20120322
  Receipt Date: 20120316
  Transmission Date: 20120608
  Serious: No
  Sender: FDA-Public Use
  Company Number: US-PFIZER INC-2012048042

PATIENT
  Sex: Male

DRUGS (2)
  1. GABAPENTIN [Suspect]
     Indication: NERVE INJURY
  2. GABAPENTIN [Suspect]
     Indication: BACK PAIN
     Dosage: 600 MG, 3X/DAY
     Route: 048

REACTIONS (24)
  - PAIN [None]
  - HANGOVER [None]
  - AMNESIA [None]
  - AGITATION [None]
  - CONFUSIONAL STATE [None]
  - DISTURBANCE IN ATTENTION [None]
  - RESTLESSNESS [None]
  - ASTHENIA [None]
  - HYPOAESTHESIA [None]
  - FALL [None]
  - HEADACHE [None]
  - INAPPROPRIATE SCHEDULE OF DRUG ADMINISTRATION [None]
  - THERAPEUTIC RESPONSE DELAYED [None]
  - COORDINATION ABNORMAL [None]
  - IMPULSIVE BEHAVIOUR [None]
  - CIRCUMSTANCE OR INFORMATION CAPABLE OF LEADING TO MEDICATION ERROR [None]
  - DIZZINESS [None]
  - SPEECH DISORDER [None]
  - FATIGUE [None]
  - DYSARTHRIA [None]
  - MOOD ALTERED [None]
  - IRRITABILITY [None]
  - MUSCLE SPASMS [None]
  - EUPHORIC MOOD [None]
